FAERS Safety Report 5533918-7 (Version None)
Quarter: 2007Q4

REPORT INFORMATION
  Report Type: 
  Country: None (occurrence: None)
  Receive Date: 20071129
  Receipt Date: 20071115
  Transmission Date: 20080405
  Serious: Yes (Hospitalization, Other)
  Sender: FDA-Public Use
  Company Number: 163615ISR

PATIENT
  Age: 14 Month
  Sex: Male

DRUGS (2)
  1. PHENYTOIN [Suspect]
  2. PARACETAMOL [Suspect]
     Dosage: (45 GRAM)

REACTIONS (7)
  - ABDOMINAL PAIN UPPER [None]
  - DRUG INTERACTION POTENTIATION [None]
  - HAEMODIALYSIS [None]
  - HEPATIC ENCEPHALOPATHY [None]
  - HEPATIC FAILURE [None]
  - INTENTIONAL OVERDOSE [None]
  - METABOLIC ACIDOSIS [None]
